FAERS Safety Report 4902418-7 (Version None)
Quarter: 2006Q1

REPORT INFORMATION
  Report Type: 
  Country: None (occurrence: None)
  Receive Date: 20060207
  Receipt Date: 20060126
  Transmission Date: 20060701
  Serious: Yes (Death, Life-Threatening, Other)
  Sender: FDA-Public Use
  Company Number: FR-BRISTOL-MYERS SQUIBB COMPANY-13268263

PATIENT
  Age: 69 Year
  Sex: Female

DRUGS (6)
  1. GLUCOPHAGE [Suspect]
     Indication: DIABETES MELLITUS
     Route: 048
  2. DIAMICRON [Concomitant]
  3. LIPANTHYL [Concomitant]
  4. NOCTRAN [Concomitant]
  5. KARDEGIC [Concomitant]
  6. ZESTORETIC [Concomitant]

REACTIONS (9)
  - ABDOMINAL PAIN [None]
  - CARDIAC ARREST [None]
  - DEHYDRATION [None]
  - HYPERKALAEMIA [None]
  - LACTIC ACIDOSIS [None]
  - NAUSEA [None]
  - RENAL FAILURE ACUTE [None]
  - SHOCK [None]
  - VOMITING [None]
